FAERS Safety Report 5789411-X (Version None)
Quarter: 2008Q2

REPORT INFORMATION
  Report Type: 
  Country: None (occurrence: None)
  Receive Date: 20080626
  Receipt Date: 20080513
  Transmission Date: 20081010
  Serious: No
  Sender: FDA-Public Use
  Company Number: US-ASTRAZENECA-2008UW01713

PATIENT
  Age: 68 Year
  Sex: Male
  Weight: 77.1 kg

DRUGS (4)
  1. PULMICORT FLEXHALER [Suspect]
     Indication: CHRONIC OBSTRUCTIVE PULMONARY DISEASE
     Route: 055
     Dates: start: 20070601
  2. NEXIUM [Concomitant]
     Route: 048
  3. SPIRIVA [Concomitant]
  4. ALBUTEROL [Concomitant]

REACTIONS (2)
  - DYSPNOEA [None]
  - MEDICATION ERROR [None]
